FAERS Safety Report 19294370 (Version 1)
Quarter: 2021Q2

REPORT INFORMATION
  Report Type: Spontaneous
  Country: US (occurrence: US)
  Receive Date: 20210524
  Receipt Date: 20210524
  Transmission Date: 20210717
  Serious: No
  Sender: FDA-Public Use
  Company Number: None

PATIENT
  Age: 34 Year
  Sex: Male
  Weight: 84.82 kg

DRUGS (1)
  1. BUPRENORPHINE / NALOXONE [Suspect]
     Active Substance: BUPRENORPHINE\NALOXONE
     Indication: DRUG DEPENDENCE
     Route: 060
     Dates: start: 20190114, end: 20210521

REACTIONS (2)
  - Treatment failure [None]
  - Product substitution issue [None]

NARRATIVE: CASE EVENT DATE: 20210512
